FAERS Safety Report 15327200 (Version 2)
Quarter: 2018Q3

REPORT INFORMATION
  Report Type: Spontaneous
  Country: US (occurrence: US)
  Receive Date: 20180828
  Receipt Date: 20180829
  Transmission Date: 20181010
  Serious: Yes (Hospitalization, Other)
  Sender: FDA-Public Use
  Company Number: US-B.I. PHARMACEUTICALS,INC./RIDGEFIELD-2018-BI-042642

PATIENT
  Age: 65 Year
  Sex: Female

DRUGS (1)
  1. JARDIANCE [Suspect]
     Active Substance: EMPAGLIFLOZIN
     Indication: PRODUCT USED FOR UNKNOWN INDICATION
     Dosage: ADMINISTRATION CORRECT? NR(NOT REPORTED); ACTION(S) TAKEN WITH PRODUCT: DRUG WITHDRAWN
     Route: 065
     Dates: end: 2018

REACTIONS (3)
  - Sepsis [Unknown]
  - Urinary tract infection [Unknown]
  - Diabetic ketoacidosis [Unknown]

NARRATIVE: CASE EVENT DATE: 2018
